FAERS Safety Report 5981950-1 (Version None)
Quarter: 2008Q4

REPORT INFORMATION
  Report Type: 
  Country: None (occurrence: None)
  Receive Date: 20081202
  Receipt Date: 20081117
  Transmission Date: 20090506
  Serious: Yes (Hospitalization)
  Sender: FDA-Public Use
  Company Number: KV200800353

PATIENT
  Age: 50 Year
  Sex: Female

DRUGS (2)
  1. MORPHINE SULFATE(MORPHINE SULFATE) SLOW RELEASE TABLET, 60MG [Suspect]
     Indication: FIBROMYALGIA
     Dosage: 15 MG, BID, ORAL
     Route: 048
     Dates: start: 20050101
  2. NUMEROUS OTHER MEDICATIONS (NOS) [Concomitant]

REACTIONS (10)
  - ABDOMINAL PAIN [None]
  - AMNESIA [None]
  - CEREBROVASCULAR ACCIDENT [None]
  - CONFUSIONAL STATE [None]
  - CONSTIPATION [None]
  - LOSS OF CONSCIOUSNESS [None]
  - SOMNOLENCE [None]
  - TINNITUS [None]
  - TRANSIENT ISCHAEMIC ATTACK [None]
  - WEIGHT DECREASED [None]
